FAERS Safety Report 9193056 (Version 2)
Quarter: 2013Q2

REPORT INFORMATION
  Report Type: Report from Study
  Country: BR (occurrence: BR)
  Receive Date: 20130327
  Receipt Date: 20130530
  Transmission Date: 20140414
  Serious: Yes (Hospitalization)
  Sender: FDA-Public Use
  Company Number: PHHY2013BR028574

PATIENT
  Age: 57 Year
  Sex: Female
  Weight: 80 kg

DRUGS (3)
  1. DIOVAN AMLO FIX [Suspect]
     Indication: BLOOD PRESSURE
     Dosage: UNK UKN(320/5 MG), ONCE A DAY
     Route: 048
  2. ATENOLOL [Concomitant]
     Indication: HYPERTENSION
     Dosage: 25 MG, DAILY
     Route: 048
  3. INDAPEN//INDAPAMIDE [Concomitant]
     Dosage: UNK UKN, UNK

REACTIONS (2)
  - Duodenal ulcer perforation [Recovered/Resolved]
  - Blood cholesterol increased [Recovered/Resolved]
